FAERS Safety Report 25252693 (Version 2)
Quarter: 2025Q2

REPORT INFORMATION
  Report Type: Spontaneous
  Country: US (occurrence: US)
  Receive Date: 20250429
  Receipt Date: 20250512
  Transmission Date: 20250716
  Serious: Yes (Other)
  Sender: BLUEPRINT MEDICINES
  Company Number: US-Blueprint Medicines Corporation-2025-AER-00849

PATIENT
  Age: 7 Year
  Sex: Female
  Weight: 38.1 kg

DRUGS (7)
  1. AYVAKIT [Suspect]
     Active Substance: AVAPRITINIB
     Indication: Indolent systemic mastocytosis
     Route: 065
     Dates: start: 20240426
  2. AYVAKIT [Suspect]
     Active Substance: AVAPRITINIB
     Indication: Systemic mastocytosis
  3. HYDROXYZINE [Concomitant]
     Active Substance: HYDROXYZINE HYDROCHLORIDE
     Indication: Systemic mastocytosis
     Route: 065
     Dates: start: 20180504
  4. CETIRIZINE [Concomitant]
     Active Substance: CETIRIZINE HYDROCHLORIDE
     Indication: Systemic mastocytosis
     Route: 065
     Dates: start: 20180423
  5. CROMOLYN [Concomitant]
     Active Substance: CROMOLYN
     Indication: Systemic mastocytosis
     Route: 065
     Dates: start: 20180423
  6. GABAPENTIN [Concomitant]
     Active Substance: GABAPENTIN
     Indication: Systemic mastocytosis
     Route: 065
     Dates: start: 20230407
  7. DIPHENHYDRAMINE [Concomitant]
     Active Substance: DIPHENHYDRAMINE
     Indication: Systemic mastocytosis
     Route: 065
     Dates: start: 20181126

REACTIONS (2)
  - Escherichia urinary tract infection [Recovered/Resolved]
  - Off label use [Unknown]

NARRATIVE: CASE EVENT DATE: 20240426
